FAERS Safety Report 15174001 (Version 1)
Quarter: 2018Q3

REPORT INFORMATION
  Report Type: Report from Study
  Country: US (occurrence: US)
  Receive Date: 20180720
  Receipt Date: 20180720
  Transmission Date: 20181010
  Serious: No
  Sender: FDA-Public Use
  Company Number: US-AMGEN-USASL2018069215

PATIENT
  Age: 56 Year
  Sex: Male

DRUGS (5)
  1. REPATHA [Suspect]
     Active Substance: EVOLOCUMAB
     Indication: HYPERLIPIDAEMIA
  2. PLAVIX [Concomitant]
     Active Substance: CLOPIDOGREL BISULFATE
  3. BABY ASPIRIN [Concomitant]
     Active Substance: ASPIRIN
     Dosage: UNK UNK, QD
  4. METOPROLOL. [Concomitant]
     Active Substance: METOPROLOL
  5. REPATHA [Suspect]
     Active Substance: EVOLOCUMAB
     Indication: HYPERCHOLESTEROLAEMIA
     Dosage: 140 MG, Q2WK
     Route: 065

REACTIONS (10)
  - Blood cholesterol decreased [Unknown]
  - Dizziness [Unknown]
  - High density lipoprotein decreased [Unknown]
  - Monocyte count increased [Unknown]
  - Epistaxis [Unknown]
  - Neutrophil count increased [Unknown]
  - Blood pressure abnormal [Not Recovered/Not Resolved]
  - Heart rate decreased [Unknown]
  - White blood cell count increased [Unknown]
  - Blood triglycerides decreased [Unknown]

NARRATIVE: CASE EVENT DATE: 2018
